FAERS Safety Report 26054380 (Version 2)
Quarter: 2025Q4

REPORT INFORMATION
  Report Type: Spontaneous
  Country: RU (occurrence: RU)
  Receive Date: 20251117
  Receipt Date: 20251126
  Transmission Date: 20260118
  Serious: Yes (Other)
  Sender: ROCHE
  Company Number: RU-ROCHE-10000434980

PATIENT
  Age: 75 Year
  Sex: Female

DRUGS (30)
  1. POLATUZUMAB VEDOTIN [Suspect]
     Active Substance: POLATUZUMAB VEDOTIN
     Indication: Diffuse large B-cell lymphoma
     Dosage: 1 ST CYCLE
     Route: 065
     Dates: start: 20231207
  2. POLATUZUMAB VEDOTIN [Suspect]
     Active Substance: POLATUZUMAB VEDOTIN
     Dosage: 2ND CYCLE
     Route: 065
     Dates: start: 20231229
  3. POLATUZUMAB VEDOTIN [Suspect]
     Active Substance: POLATUZUMAB VEDOTIN
     Dosage: 3RD CYCLE
     Route: 065
     Dates: start: 20240119
  4. POLATUZUMAB VEDOTIN [Suspect]
     Active Substance: POLATUZUMAB VEDOTIN
     Dosage: 4TH CYCLE
     Route: 065
     Dates: start: 20240209
  5. POLATUZUMAB VEDOTIN [Suspect]
     Active Substance: POLATUZUMAB VEDOTIN
     Dosage: 5TH CYCLE
     Route: 065
     Dates: start: 20240301
  6. POLATUZUMAB VEDOTIN [Suspect]
     Active Substance: POLATUZUMAB VEDOTIN
     Dosage: 6TH CYCLE
     Route: 065
     Dates: start: 20240322
  7. RITUXIMAB [Suspect]
     Active Substance: RITUXIMAB
     Indication: Diffuse large B-cell lymphoma
     Dosage: 1 ST CYCLE
     Route: 065
     Dates: start: 20231207
  8. RITUXIMAB [Suspect]
     Active Substance: RITUXIMAB
     Dosage: 2ND CYCLE
     Route: 065
     Dates: start: 20231229
  9. RITUXIMAB [Suspect]
     Active Substance: RITUXIMAB
     Dosage: 3RD CYCLE
     Route: 065
     Dates: start: 20240119
  10. RITUXIMAB [Suspect]
     Active Substance: RITUXIMAB
     Dosage: 4TH CYCLE
     Route: 065
     Dates: start: 20240209
  11. RITUXIMAB [Suspect]
     Active Substance: RITUXIMAB
     Dosage: 5TH CYCLE
     Route: 065
     Dates: start: 20240301
  12. RITUXIMAB [Suspect]
     Active Substance: RITUXIMAB
     Dosage: 6TH CYCLE
     Route: 065
     Dates: start: 20240322
  13. CYCLOPHOSPHAMIDE [Suspect]
     Active Substance: CYCLOPHOSPHAMIDE
     Indication: Diffuse large B-cell lymphoma
     Dosage: 1 ST CYCLE
     Route: 065
     Dates: start: 20231207
  14. CYCLOPHOSPHAMIDE [Suspect]
     Active Substance: CYCLOPHOSPHAMIDE
     Dosage: 2ND CYCLE
     Route: 065
     Dates: start: 20231229
  15. CYCLOPHOSPHAMIDE [Suspect]
     Active Substance: CYCLOPHOSPHAMIDE
     Dosage: 3RD CYCLE
     Route: 065
     Dates: start: 20240119
  16. CYCLOPHOSPHAMIDE [Suspect]
     Active Substance: CYCLOPHOSPHAMIDE
     Dosage: 4TH CYCLE
     Route: 065
     Dates: start: 20240209
  17. CYCLOPHOSPHAMIDE [Suspect]
     Active Substance: CYCLOPHOSPHAMIDE
     Dosage: 5TH CYCLE
     Route: 065
     Dates: start: 20240301
  18. CYCLOPHOSPHAMIDE [Suspect]
     Active Substance: CYCLOPHOSPHAMIDE
     Dosage: 6TH CYCLE
     Route: 065
     Dates: start: 20240322
  19. PREDNISOLONE [Suspect]
     Active Substance: PREDNISOLONE
     Indication: Diffuse large B-cell lymphoma
     Dosage: 1 ST CYCLE
     Route: 065
     Dates: start: 20231207
  20. PREDNISOLONE [Suspect]
     Active Substance: PREDNISOLONE
     Dosage: 2ND CYCLE
     Route: 065
     Dates: start: 20231229
  21. PREDNISOLONE [Suspect]
     Active Substance: PREDNISOLONE
     Dosage: 3RD CYCLE
     Route: 065
     Dates: start: 20240119
  22. PREDNISOLONE [Suspect]
     Active Substance: PREDNISOLONE
     Dosage: 4TH CYCLE
     Route: 065
     Dates: start: 20240209
  23. PREDNISOLONE [Suspect]
     Active Substance: PREDNISOLONE
     Dosage: 5TH CYCLE
     Route: 065
     Dates: start: 20240301
  24. PREDNISOLONE [Suspect]
     Active Substance: PREDNISOLONE
     Dosage: 6TH CYCLE
     Route: 065
     Dates: start: 20240322
  25. DOXORUBICIN [Suspect]
     Active Substance: DOXORUBICIN
     Indication: Diffuse large B-cell lymphoma
     Dosage: 1 ST CYCLE
     Route: 065
     Dates: start: 20231207
  26. DOXORUBICIN [Suspect]
     Active Substance: DOXORUBICIN
     Dosage: 2ND CYCLE
     Route: 065
     Dates: start: 20231229
  27. DOXORUBICIN [Suspect]
     Active Substance: DOXORUBICIN
     Dosage: 3RD CYCLE
     Route: 065
     Dates: start: 20240119
  28. DOXORUBICIN [Suspect]
     Active Substance: DOXORUBICIN
     Dosage: 4TH CYCLE
     Route: 065
     Dates: start: 20240209
  29. DOXORUBICIN [Suspect]
     Active Substance: DOXORUBICIN
     Dosage: 5TH CYCLE
     Route: 065
     Dates: start: 20240301
  30. DOXORUBICIN [Suspect]
     Active Substance: DOXORUBICIN
     Dosage: 6TH CYCLE
     Route: 065
     Dates: start: 20240322

REACTIONS (2)
  - Neutropenia [Unknown]
  - Functional gastrointestinal disorder [Unknown]
